FAERS Safety Report 6834223-9 (Version None)
Quarter: 2010Q3

REPORT INFORMATION
  Report Type: 
  Country: None (occurrence: None)
  Receive Date: 20100712
  Receipt Date: 20070818
  Transmission Date: 20110219
  Serious: No
  Sender: FDA-Public Use
  Company Number: US-PFIZER INC-2007034374

PATIENT
  Sex: Female
  Weight: 51.3 kg

DRUGS (8)
  1. CHANTIX [Suspect]
     Indication: SMOKING CESSATION THERAPY
     Dates: start: 20070404, end: 20070420
  2. EUCERIN [Interacting]
     Dates: end: 20070401
  3. ADVAIR DISKUS 100/50 [Concomitant]
  4. ALBUTEROL [Concomitant]
  5. SPIRIVA [Concomitant]
  6. PROCATEROL HCL [Concomitant]
  7. DIAZEPAM [Concomitant]
  8. FOSAMAX [Concomitant]

REACTIONS (5)
  - ABNORMAL DREAMS [None]
  - DRUG INTERACTION [None]
  - LOCAL SWELLING [None]
  - NAUSEA [None]
  - RASH [None]
